FAERS Safety Report 20855354 (Version 4)
Quarter: 2023Q2

REPORT INFORMATION
  Report Type: Spontaneous
  Country: BR (occurrence: BR)
  Receive Date: 20220520
  Receipt Date: 20230531
  Transmission Date: 20230722
  Serious: Yes (Death, Hospitalization, Other)
  Sender: FDA-Public Use
  Company Number: BR-BIOGEN-2022BI01124286

PATIENT
  Age: 0 Year
  Sex: Male
  Weight: 9 kg

DRUGS (3)
  1. SPINRAZA [Suspect]
     Active Substance: NUSINERSEN
     Indication: Spinal muscular atrophy
     Dosage: TRANSFONTANELLAR ROUTE; LOADING DOSE
     Route: 050
     Dates: start: 20220404
  2. SPINRAZA [Suspect]
     Active Substance: NUSINERSEN
     Dosage: LOADING DOSE
     Route: 050
     Dates: start: 20220504
  3. SPINRAZA [Suspect]
     Active Substance: NUSINERSEN
     Route: 050
     Dates: start: 20220527

REACTIONS (13)
  - Spinal muscular atrophy [Fatal]
  - Seizure [Recovered/Resolved]
  - Cerebral haemorrhage [Unknown]
  - Cardio-respiratory arrest [Recovered/Resolved]
  - Hypotonia [Unknown]
  - Lung disorder [Not Recovered/Not Resolved]
  - Pyrexia [Not Recovered/Not Resolved]
  - Pneumonia [Not Recovered/Not Resolved]
  - Hydrocephalus [Recovered/Resolved]
  - Off label use [Recovered/Resolved]
  - Salivary hypersecretion [Unknown]
  - Malaise [Not Recovered/Not Resolved]
  - Neurological procedural complication [Unknown]

NARRATIVE: CASE EVENT DATE: 20220401
